FAERS Safety Report 22621906 (Version 1)
Quarter: 2023Q2

REPORT INFORMATION
  Report Type: Spontaneous
  Country: PL (occurrence: PL)
  Receive Date: 20230620
  Receipt Date: 20230620
  Transmission Date: 20230722
  Serious: Yes (Other)
  Sender: FDA-Public Use
  Company Number: PL-002147023-NVSC2023PL124142

PATIENT
  Age: 62 Year
  Sex: Female

DRUGS (3)
  1. IMATINIB [Suspect]
     Active Substance: IMATINIB
     Indication: Chronic myeloid leukaemia
     Dosage: UNK
     Route: 065
     Dates: start: 20210216
  2. NILOTINIB [Suspect]
     Active Substance: NILOTINIB
     Indication: Chronic myeloid leukaemia
     Dosage: 600 MILLIGRAM
     Route: 065
     Dates: start: 20210429
  3. NILOTINIB [Suspect]
     Active Substance: NILOTINIB
     Dosage: 400 MILLIGRAM
     Route: 065
     Dates: start: 20210513, end: 20210608

REACTIONS (13)
  - Thrombocytopenia [Unknown]
  - Alanine aminotransferase decreased [Unknown]
  - Blood bilirubin decreased [Unknown]
  - Aspartate aminotransferase decreased [Unknown]
  - Platelet count increased [Unknown]
  - Drug intolerance [Unknown]
  - Alopecia [Not Recovered/Not Resolved]
  - Face oedema [Unknown]
  - Transaminases increased [Unknown]
  - Eyelid oedema [Unknown]
  - Pruritus [Unknown]
  - Rash papular [Unknown]
  - Blood bilirubin increased [Unknown]

NARRATIVE: CASE EVENT DATE: 20210506
